FAERS Safety Report 5964028-2 (Version None)
Quarter: 2008Q4

REPORT INFORMATION
  Report Type: 
  Country: None (occurrence: None)
  Receive Date: 20081119
  Receipt Date: 20080818
  Transmission Date: 20090506
  Serious: No
  Sender: FDA-Public Use
  Company Number: WAES 0808USA03207

PATIENT
  Age: 65 Year
  Sex: Male

DRUGS (19)
  1. JANUVIA [Suspect]
     Indication: DIABETES MELLITUS
     Dosage: 100 MG/DAILY/PO
     Route: 048
     Dates: start: 20080813
  2. ACIPHEX [Concomitant]
  3. ACTONEL [Concomitant]
  4. ADVAIR HFA [Concomitant]
  5. CLARITIN [Concomitant]
  6. NASONEX [Concomitant]
  7. PLAVIX [Concomitant]
  8. PRANDIN [Concomitant]
  9. SPIRIVA [Concomitant]
  10. XOPENEX HFA [Concomitant]
  11. ZETIA [Concomitant]
  12. ZOCOR [Concomitant]
  13. ASPIRIN [Concomitant]
  14. DILTIAZEM HYDROCHLORIDE [Concomitant]
  15. GABAPENTIN [Concomitant]
  16. GLIMEPIRIDE [Concomitant]
  17. HYDROCODONE BITARTRATE [Concomitant]
  18. LISINOPRIL [Concomitant]
  19. THEOPHYLLINE [Concomitant]

REACTIONS (2)
  - CHEST DISCOMFORT [None]
  - DYSPNOEA [None]
